FAERS Safety Report 7853132 (Version 8)
Quarter: 2013Q2

REPORT INFORMATION
  Report Type: Spontaneous
  Country: US (occurrence: US)
  Receive Date: 20110311
  Receipt Date: 20130626
  Transmission Date: 20140414
  Serious: Yes (Hospitalization, Disabling, Other)
  Sender: FDA-Public Use
  Company Number: US-MERCK-1103USA00910

PATIENT
  Sex: Female
  Weight: 58.97 kg

DRUGS (15)
  1. FOSAMAX [Suspect]
     Indication: OSTEOPOROSIS
     Dosage: 70 MG, QW
     Route: 048
     Dates: start: 20060823, end: 200802
  2. FOSAMAX [Suspect]
     Indication: OSTEOPOROSIS
     Dosage: 70 MG, QW
     Route: 048
     Dates: start: 20100815
  3. LEVOTIROXINA S.O [Concomitant]
     Indication: HYPOTHYROIDISM
     Dosage: TO PRESENT
     Dates: start: 1997
  4. SYNTHROID [Concomitant]
     Indication: HYPOTHYROIDISM
     Dosage: 50-175
     Route: 048
  5. DILANTIN [Concomitant]
     Indication: CONVULSION
     Dosage: 200 MG, HS
  6. ZOCOR [Concomitant]
     Indication: HYPERLIPIDAEMIA
     Dosage: 40 MG, QD
     Route: 048
  7. DUONEB [Concomitant]
     Indication: CHRONIC OBSTRUCTIVE PULMONARY DISEASE
     Dosage: UNK UNK, BID
  8. ALBUTEROL [Concomitant]
     Indication: CHRONIC OBSTRUCTIVE PULMONARY DISEASE
     Route: 055
  9. CALCIUM (UNSPECIFIED) [Concomitant]
     Indication: OSTEOPOROSIS
     Dosage: 2000 MG, QD
     Route: 048
  10. VITAMIN D (UNSPECIFIED) [Concomitant]
     Indication: OSTEOPOROSIS
     Dosage: 300-1500
  11. WELLBUTRIN [Concomitant]
     Indication: DEPRESSION
     Dosage: 75 MG, BID
  12. NICODERM PATCH [Concomitant]
     Indication: EX-TOBACCO USER
  13. CHANTIX [Concomitant]
     Indication: EX-TOBACCO USER
     Dosage: 1 MG, BID
  14. ALENDRONATE SODIUM [Suspect]
     Indication: OSTEOPOROSIS
     Dosage: UNK
     Route: 048
     Dates: start: 20080303, end: 20090105
  15. ALENDRONATE SODIUM [Suspect]
     Dosage: 70 MG, QW
     Route: 048
     Dates: start: 20090129, end: 20100718

REACTIONS (25)
  - Femur fracture [Not Recovered/Not Resolved]
  - Hip surgery [Unknown]
  - Fracture [Unknown]
  - Post procedural haemorrhage [Unknown]
  - Osteoporosis [Unknown]
  - Stress fracture [Unknown]
  - Femur fracture [Unknown]
  - Chronic obstructive pulmonary disease [Recovering/Resolving]
  - Lobar pneumonia [Recovering/Resolving]
  - Low turnover osteopathy [Unknown]
  - Fibroadenoma of breast [Unknown]
  - Irritable bowel syndrome [Unknown]
  - Breast cyst [Unknown]
  - Cataract [Unknown]
  - Vitamin D deficiency [Unknown]
  - Chronic obstructive pulmonary disease [Recovered/Resolved]
  - Leukocytosis [Unknown]
  - Bronchitis [Unknown]
  - Hypertension [Unknown]
  - Atelectasis [Unknown]
  - Chest pain [Unknown]
  - Dyspnoea [Unknown]
  - Drug ineffective [Unknown]
  - Back pain [Unknown]
  - Drug ineffective [Unknown]
